FAERS Safety Report 7794416-3 (Version None)
Quarter: 2011Q4

REPORT INFORMATION
  Report Type: 
  Country: None (occurrence: None)
  Receive Date: 20111004
  Receipt Date: 20111004
  Transmission Date: 20120403
  Serious: Yes (Life-Threatening, Hospitalization)
  Sender: FDA-Public Use
  Company Number: None

PATIENT
  Age: 68 Year
  Sex: Male
  Weight: 83.914 kg

DRUGS (2)
  1. JAYLN -DUTASTERIDE/TAMSULOSIN- [Concomitant]
     Indication: MICTURITION URGENCY
     Dosage: 1 CAPSULE
     Route: 048
     Dates: start: 20100601, end: 20110901
  2. FINASTERIDE [Suspect]
     Indication: MICTURITION URGENCY
     Dosage: 1 TABLET
     Route: 048
     Dates: start: 20040101, end: 20100501

REACTIONS (2)
  - PRODUCT SUBSTITUTION ISSUE [None]
  - PROSTATE CANCER [None]
